FAERS Safety Report 20418082 (Version 3)
Quarter: 2022Q2

REPORT INFORMATION
  Report Type: Spontaneous
  Country: US (occurrence: US)
  Receive Date: 20220202
  Receipt Date: 20220421
  Transmission Date: 20220721
  Serious: No
  Sender: FDA-Public Use
  Company Number: US-LUNDBECK-DKLU3043603

PATIENT
  Age: 77 Year
  Sex: Female

DRUGS (17)
  1. VYEPTI [Suspect]
     Active Substance: EPTINEZUMAB-JJMR
     Indication: Migraine
     Route: 041
  2. VYEPTI [Suspect]
     Active Substance: EPTINEZUMAB-JJMR
     Route: 041
  3. VYEPTI [Suspect]
     Active Substance: EPTINEZUMAB-JJMR
     Route: 041
     Dates: start: 20211001, end: 2021
  4. BOTOX [Concomitant]
     Active Substance: ONABOTULINUMTOXINA
     Indication: Product used for unknown indication
     Route: 065
  5. NURTEC ODT [Concomitant]
     Active Substance: RIMEGEPANT SULFATE
     Indication: Migraine
     Route: 065
  6. ZOFRAN [Concomitant]
     Active Substance: ONDANSETRON HYDROCHLORIDE
     Indication: Nausea
     Route: 065
  7. TYLENOL [Concomitant]
     Active Substance: ACETAMINOPHEN
     Indication: Headache
     Route: 065
  8. CARBIDOPA\LEVODOPA [Concomitant]
     Active Substance: CARBIDOPA\LEVODOPA
     Indication: Parkinson^s disease
     Route: 065
  9. RASAGILINE [Concomitant]
     Active Substance: RASAGILINE
     Indication: Parkinson^s disease
     Route: 065
  10. BENEFIBER [Concomitant]
     Active Substance: STARCH, WHEAT
     Indication: Gastrointestinal hypomotility
     Route: 065
  11. FLAXSEED POWDER [Concomitant]
     Indication: Gastrointestinal hypomotility
  12. LINZESS [Concomitant]
     Active Substance: LINACLOTIDE
     Indication: Gastrointestinal hypomotility
     Route: 065
  13. LINZESS [Concomitant]
     Active Substance: LINACLOTIDE
     Route: 065
  14. TRULANCE [Concomitant]
     Active Substance: PLECANATIDE
     Indication: Gastrointestinal hypomotility
     Route: 065
  15. MAGNESIUM CITRATE [Concomitant]
     Active Substance: MAGNESIUM CITRATE
     Indication: Constipation
     Route: 065
  16. ESTROGENS [Concomitant]
     Active Substance: ESTROGENS
     Indication: Hot flush
     Route: 065
  17. TESTOSTERONE [Concomitant]
     Active Substance: TESTOSTERONE
     Indication: Hot flush
     Route: 065

REACTIONS (6)
  - Headache [Recovering/Resolving]
  - Dry throat [Unknown]
  - Malaise [Not Recovered/Not Resolved]
  - Constipation [Not Recovered/Not Resolved]
  - Therapeutic response shortened [Unknown]
  - Inappropriate schedule of product administration [Unknown]
